FAERS Safety Report 5130226-3 (Version None)
Quarter: 2006Q4

REPORT INFORMATION
  Report Type: 
  Country: None (occurrence: None)
  Receive Date: 20061019
  Receipt Date: 20060425
  Transmission Date: 20070319
  Serious: Yes (Other)
  Sender: FDA-Public Use
  Company Number: PHBS2006FR06362

PATIENT
  Age: 39 Year
  Sex: Female

DRUGS (3)
  1. CARBAMAZEPINE [Suspect]
     Indication: PARTIAL SEIZURES
     Dosage: 800 MG/DAY
     Route: 065
  2. PHENOBARBITAL TAB [Suspect]
     Indication: PARTIAL SEIZURES
     Dosage: 50 MG/DAY
     Route: 065
  3. PHENYTOIN [Suspect]
     Indication: PARTIAL SEIZURES
     Dosage: 350 MG/DAY
     Route: 065

REACTIONS (9)
  - CONDITION AGGRAVATED [None]
  - CONFUSIONAL STATE [None]
  - DEPRESSED LEVEL OF CONSCIOUSNESS [None]
  - DISINHIBITION [None]
  - ELECTROENCEPHALOGRAM ABNORMAL [None]
  - EYE MOVEMENT DISORDER [None]
  - GRAND MAL CONVULSION [None]
  - STATUS EPILEPTICUS [None]
  - STEREOTYPIC MOVEMENT DISORDER [None]
